FAERS Safety Report 4491562-7 (Version None)
Quarter: 2004Q4

REPORT INFORMATION
  Report Type: 
  Country: None (occurrence: None)
  Receive Date: 20041102
  Receipt Date: 20041026
  Transmission Date: 20050328
  Serious: Yes (Hospitalization)
  Sender: FDA-Public Use
  Company Number: J081-002-001705

PATIENT
  Age: 75 Year
  Sex: Male

DRUGS (9)
  1. ARICEPT [Suspect]
     Indication: DEMENTIA
     Dosage: 5 MG, 1 IN 1 D, ORAL
     Route: 048
     Dates: start: 20031020, end: 20040610
  2. CABERGOLINE [Suspect]
     Indication: PARKINSON'S DISEASE
     Dosage: 2 MG, ORAL
     Route: 048
     Dates: start: 20010215, end: 20040529
  3. RISUMIC (AMEZINIUM METILSULFATE) [Concomitant]
  4. PANTOSIN (PANTETHINE) [Concomitant]
  5. MAGNESIUM OXIDE (MAGNESIUM OXIDE) [Concomitant]
  6. SELBEX (TEPRENONE) [Concomitant]
  7. CEROCRAL (IFENPRODIL TARTRATE) [Concomitant]
  8. ZYLORIC (ALLOPURINOL) [Concomitant]
  9. BUP-4 (PROPIVERINE HYDROCHLORIDE) [Concomitant]

REACTIONS (14)
  - ANAEMIA [None]
  - BLOOD PRESSURE DECREASED [None]
  - CARDIAC FAILURE [None]
  - CARDIOMEGALY [None]
  - DEMENTIA [None]
  - DEREALISATION [None]
  - DYSPNOEA EXERTIONAL [None]
  - GAIT DISTURBANCE [None]
  - HALLUCINATION [None]
  - HEART RATE DECREASED [None]
  - HEPATIC FUNCTION ABNORMAL [None]
  - HYPOTHYROIDISM [None]
  - LOSS OF CONSCIOUSNESS [None]
  - PLEURAL EFFUSION [None]
